FAERS Safety Report 16314723 (Version 1)
Quarter: 2019Q2

REPORT INFORMATION
  Report Type: Spontaneous
  Country: US (occurrence: US)
  Receive Date: 20190409
  Receipt Date: 20190409
  Transmission Date: 20190711
  Serious: Yes (Other)
  Sender: FDA-Public Use
  Company Number: None

PATIENT
  Age: 83 Year
  Sex: Male
  Weight: 72.57 kg

DRUGS (9)
  1. MULTI-VITAMIN [Concomitant]
     Active Substance: .ALPHA.-TOCOPHEROL ACETATE, DL-\ASCORBIC ACID\CYANOCOBALAMIN\FLUORIDE ION\FOLIC ACID\NIACIN\PYRIDOXINE\RIBOFLAVIN\THIAMINE\VITAMIN A\VITAMIN D
  2. LEVOFLOXACIN 500MG TAB [Suspect]
     Active Substance: LEVOFLOXACIN
     Dosage: ?          QUANTITY:10 DF DOSAGE FORM;?
     Route: 048
     Dates: start: 20190226, end: 20190302
  3. ELIQUIS [Concomitant]
     Active Substance: APIXABAN
  4. MAGNESIUM [Concomitant]
     Active Substance: MAGNESIUM
  5. LOVASTATIN. [Concomitant]
     Active Substance: LOVASTATIN
  6. COENZYME Q10 [Concomitant]
     Active Substance: UBIDECARENONE
  7. METOPROLOL TARTRATE. [Concomitant]
     Active Substance: METOPROLOL TARTRATE
  8. ALFOZOSIN HCL [Concomitant]
  9. SUPRAX [Concomitant]
     Active Substance: CEFIXIME

REACTIONS (2)
  - Tendon pain [None]
  - Arthralgia [None]

NARRATIVE: CASE EVENT DATE: 20190301
